FAERS Safety Report 21552449 (Version 1)
Quarter: 2022Q4

REPORT INFORMATION
  Report Type: Report from Study
  Country: US (occurrence: US)
  Receive Date: 20221104
  Receipt Date: 20221104
  Transmission Date: 20230112
  Serious: Yes (Hospitalization)
  Sender: FDA-Public Use
  Company Number: US-ABBVIE-4186856

PATIENT
  Age: 70 Year
  Sex: Male

DRUGS (1)
  1. HUMIRA [Suspect]
     Active Substance: ADALIMUMAB
     Indication: Ankylosing spondylitis
     Dosage: CF?STRENGTH: 40 MILLIGRAM
     Route: 058

REACTIONS (2)
  - Medical device site infection [Recovering/Resolving]
  - Dental implantation [Unknown]

NARRATIVE: CASE EVENT DATE: 20221001
